FAERS Safety Report 24043930 (Version 6)
Quarter: 2025Q4

REPORT INFORMATION
  Report Type: Spontaneous
  Country: US (occurrence: US)
  Receive Date: 20240703
  Receipt Date: 20251014
  Transmission Date: 20260118
  Serious: Yes (Death, Life-Threatening, Hospitalization, Other)
  Sender: DELCATH SYSTEMS
  Company Number: US-DELCATH SYSTEMS-DELC-000002

PATIENT
  Age: 50 Year
  Sex: Male
  Weight: 105 kg

DRUGS (9)
  1. HEPZATO [Suspect]
     Active Substance: MELPHALAN
     Indication: Metastases to liver
     Dosage: 220 MICROGRAM
     Dates: start: 20240528, end: 20240528
  2. HEPZATO [Suspect]
     Active Substance: MELPHALAN
     Indication: Malignant melanoma
     Dosage: 220 MICROGRAM
     Dates: start: 20240403, end: 20240403
  3. CYANOCOBALAMIN [Concomitant]
     Active Substance: CYANOCOBALAMIN
     Indication: Product used for unknown indication
  4. VITAMIN D NOS [Concomitant]
     Active Substance: CHOLECALCIFEROL\ERGOCALCIFEROL
     Indication: Product used for unknown indication
  5. VITAMIN B COMPLEX [Concomitant]
     Active Substance: CYANOCOBALAMIN\DEXPANTHENOL\NIACINAMIDE\PYRIDOXINE HYDROCHLORIDE\RIBOFLAVIN 5^-PHOSPHATE SODIUM\THIA
     Indication: Product used for unknown indication
  6. ZOFRAN [Concomitant]
     Active Substance: ONDANSETRON HYDROCHLORIDE
     Indication: Product used for unknown indication
  7. FULPHILA [Concomitant]
     Active Substance: PEGFILGRASTIM-JMDB
     Indication: Product used for unknown indication
  8. PROCHLORPERAZINE EDISYLATE [Concomitant]
     Active Substance: PROCHLORPERAZINE EDISYLATE
     Indication: Product used for unknown indication
  9. AMBIEN [Concomitant]
     Active Substance: ZOLPIDEM TARTRATE
     Indication: Product used for unknown indication

REACTIONS (4)
  - Venoocclusive liver disease [Fatal]
  - Deep vein thrombosis [Unknown]
  - Blood creatine phosphokinase increased [Unknown]
  - Disease progression [Fatal]

NARRATIVE: CASE EVENT DATE: 20240601
